FAERS Safety Report 11425957 (Version 1)
Quarter: 2015Q3

REPORT INFORMATION
  Report Type: Spontaneous
  Country: US (occurrence: US)
  Receive Date: 20150821
  Receipt Date: 20150821
  Transmission Date: 20151125
  Serious: No
  Sender: FDA-Public Use
  Company Number: US-ELI_LILLY_AND_COMPANY-US201012006024

PATIENT
  Age: 71 Year
  Sex: Female

DRUGS (7)
  1. ANTIHYPERTENSIVE AGENT [Concomitant]
  2. COUMADIN [Concomitant]
     Active Substance: WARFARIN SODIUM
  3. ANTIGOUT PREPARATIONS [Concomitant]
     Active Substance: UNSPECIFIED INGREDIENT
  4. VITAMINS [Concomitant]
     Active Substance: VITAMINS
  5. METFORMIN [Concomitant]
     Active Substance: METFORMIN HYDROCHLORIDE
  6. INSULIN [Concomitant]
     Active Substance: INSULIN NOS
  7. HUMULIN N [Suspect]
     Active Substance: INSULIN HUMAN
     Indication: TYPE 2 DIABETES MELLITUS
     Dosage: 30 U, EACH EVENING

REACTIONS (1)
  - Overdose [Unknown]
